FAERS Safety Report 5215477-1 (Version None)
Quarter: 2007Q1

REPORT INFORMATION
  Report Type: 
  Country: None (occurrence: None)
  Receive Date: 20070119
  Receipt Date: 20070119
  Transmission Date: 20070707
  Serious: Yes (Hospitalization)
  Sender: FDA-Public Use
  Company Number: None

PATIENT
  Age: 49 Year
  Sex: Male
  Weight: 136.0791 kg

DRUGS (11)
  1. ARIPIPRAZOLE [Suspect]
     Indication: AUTISM
     Dosage: 15MG  DAILY  PO
     Route: 048
  2. ARIPIPRAZOLE [Suspect]
     Indication: DEPRESSION
     Dosage: 15MG  DAILY  PO
     Route: 048
  3. ARIPIPRAZOLE [Suspect]
     Indication: MILD MENTAL RETARDATION
     Dosage: 15MG  DAILY  PO
     Route: 048
  4. LOTREL [Concomitant]
  5. LEVOTHYROXINE SODIUM [Concomitant]
  6. GLYBURIDE [Concomitant]
  7. METFORMIN HCL [Concomitant]
  8. LIPITOR [Concomitant]
  9. ATENOLOL AND CHLORTHALIDONE [Concomitant]
  10. ESCITALOPRAM OXALATE [Concomitant]
  11. ASPIRIN [Concomitant]

REACTIONS (1)
  - PANCREATITIS [None]
